FAERS Safety Report 7484507-9 (Version None)
Quarter: 2011Q2

REPORT INFORMATION
  Report Type: 
  Country: None (occurrence: None)
  Receive Date: 20110517
  Receipt Date: 20110509
  Transmission Date: 20111010
  Serious: No
  Sender: FDA-Public Use
  Company Number: US-BIOGENIDEC-2010BI029225

PATIENT
  Age: 42 Year
  Sex: Female

DRUGS (1)
  1. TYSABRI [Suspect]
     Indication: MULTIPLE SCLEROSIS
     Route: 042
     Dates: start: 20100621

REACTIONS (6)
  - WHITE BLOOD CELL COUNT INCREASED [None]
  - POLLAKIURIA [None]
  - WHITE BLOOD CELLS URINE POSITIVE [None]
  - URINARY TRACT INFECTION [None]
  - BLOOD DISORDER [None]
  - URINARY TRACT DISORDER [None]
